FAERS Safety Report 7138425-6 (Version None)
Quarter: 2010Q4

REPORT INFORMATION
  Report Type: 
  Country: None (occurrence: None)
  Receive Date: 20101202
  Receipt Date: 20101202
  Transmission Date: 20110411
  Serious: No
  Sender: FDA-Public Use
  Company Number: None

PATIENT
  Age: 60 Year
  Sex: Male
  Weight: 68 kg

DRUGS (1)
  1. IMMUNE GLOBULIN NOS [Suspect]
     Dosage: 35 GM ONCE IV
     Route: 042
     Dates: start: 20101015, end: 20101015

REACTIONS (3)
  - INFUSION RELATED REACTION [None]
  - NON-CARDIAC CHEST PAIN [None]
  - PAIN [None]
